FAERS Safety Report 7426293-4 (Version None)
Quarter: 2011Q2

REPORT INFORMATION
  Report Type: 
  Country: None (occurrence: None)
  Receive Date: 20110420
  Receipt Date: 20110413
  Transmission Date: 20111010
  Serious: Yes (Other)
  Sender: FDA-Public Use
  Company Number: A0922851A

PATIENT
  Age: 63 Year
  Sex: Female

DRUGS (6)
  1. SYNTHROID [Concomitant]
  2. MULTI-VITAMIN [Concomitant]
  3. LOVAZA [Suspect]
     Dosage: 2CAP TWICE PER DAY
     Route: 048
     Dates: start: 20100301
  4. SUDAFED 12 HOUR [Concomitant]
  5. ALLEGRA [Concomitant]
  6. ALLERGY MEDICATION [Concomitant]

REACTIONS (5)
  - ASPARTATE AMINOTRANSFERASE INCREASED [None]
  - ALANINE AMINOTRANSFERASE INCREASED [None]
  - BLOOD TRIGLYCERIDES INCREASED [None]
  - HIGH DENSITY LIPOPROTEIN DECREASED [None]
  - DRUG INEFFECTIVE [None]
